FAERS Safety Report 7590938-9 (Version None)
Quarter: 2011Q3

REPORT INFORMATION
  Report Type: 
  Country: None (occurrence: None)
  Receive Date: 20110705
  Receipt Date: 20110624
  Transmission Date: 20111222
  Serious: No
  Sender: FDA-Public Use
  Company Number: PHHY2011US58909

PATIENT
  Age: 54 Year
  Sex: Female

DRUGS (5)
  1. GLIPIZIDE [Concomitant]
  2. METFOREM [Concomitant]
  3. TASIGNA [Suspect]
     Indication: CHRONIC MYELOID LEUKAEMIA
     Dosage: 400 MG, Q12H
     Route: 048
     Dates: start: 20110330
  4. LISINOPRIL [Concomitant]
     Dosage: UNK
  5. CARDIZEM [Concomitant]

REACTIONS (2)
  - RASH [None]
  - FATIGUE [None]
